FAERS Safety Report 6815328-5 (Version None)
Quarter: 2010Q3

REPORT INFORMATION
  Report Type: 
  Country: None (occurrence: None)
  Receive Date: 20100702
  Receipt Date: 20100628
  Transmission Date: 20110219
  Serious: Yes (Hospitalization, Other)
  Sender: FDA-Public Use
  Company Number: FR-BRISTOL-MYERS SQUIBB COMPANY-15171580

PATIENT
  Age: 89 Year
  Sex: Female

DRUGS (7)
  1. COUMADIN [Suspect]
     Indication: ATRIAL FIBRILLATION
     Dosage: 1 DF = HALF TABLET DAILY.
     Route: 048
     Dates: start: 20090525, end: 20091115
  2. CORDARONE [Concomitant]
     Indication: ATRIAL FIBRILLATION
     Route: 048
  3. CALCIDOSE [Concomitant]
     Indication: OSTEOPOROSIS
     Route: 048
  4. VITAMIN D [Concomitant]
     Indication: OSTEOPOROSIS
     Route: 048
  5. SINEMET [Concomitant]
     Indication: COGNITIVE DISORDER
     Dosage: 1DF-100 MG/10 MG  A HALF SCORED TABLET THREE TIMES A DAY
     Route: 048
     Dates: start: 20090526
  6. COVERSYL [Concomitant]
     Indication: HYPERTENSION
     Route: 048
     Dates: start: 20090526
  7. LASIX [Concomitant]
     Indication: HYPERTENSION
     Dosage: 1DF - 1 TABLET
     Route: 048
     Dates: start: 20090526

REACTIONS (2)
  - INTERNATIONAL NORMALISED RATIO INCREASED [None]
  - IRON DEFICIENCY ANAEMIA [None]
